FAERS Safety Report 6112910-8 (Version None)
Quarter: 2009Q1

REPORT INFORMATION
  Report Type: 
  Country: None (occurrence: None)
  Receive Date: 20090312
  Receipt Date: 20090304
  Transmission Date: 20090719
  Serious: Yes (Hospitalization)
  Sender: FDA-Public Use
  Company Number: FR-BAXTER-2009BH003606

PATIENT
  Age: 62 Year
  Sex: Male

DRUGS (5)
  1. ENDOXAN BAXTER [Suspect]
     Indication: CHRONIC LYMPHOCYTIC LEUKAEMIA
     Route: 048
     Dates: start: 20071203, end: 20080506
  2. FLUDARA [Suspect]
     Indication: CHRONIC LYMPHOCYTIC LEUKAEMIA
     Route: 048
     Dates: start: 20071203, end: 20080506
  3. MABTHERA [Suspect]
     Indication: CHRONIC LYMPHOCYTIC LEUKAEMIA
     Route: 042
     Dates: start: 20071203, end: 20081117
  4. EPOETIN BETA [Concomitant]
     Dates: start: 20080101, end: 20080101
  5. LENOGRASTIM [Concomitant]
     Dates: start: 20080101, end: 20080501

REACTIONS (1)
  - LUNG NEOPLASM MALIGNANT [None]
